FAERS Safety Report 8808095 (Version 1)
Quarter: 2012Q4

REPORT INFORMATION
  Report Type: 
  Country: US (occurrence: US)
  Receive Date: 20120925
  Receipt Date: 20120925
  Transmission Date: 20130627
  Serious: Yes (Hospitalization, Disabling)
  Sender: FDA-Public Use
  Company Number: US-ROCHE-1122433

PATIENT
  Age: 62 Year
  Sex: Male
  Weight: 172.52 kg

DRUGS (2)
  1. TOCILIZUMAB [Suspect]
     Indication: RHEUMATOID ARTHRITIS
     Route: 042
     Dates: start: 20110720
  2. TOCILIZUMAB [Suspect]
     Route: 042

REACTIONS (3)
  - Cerebral decompression [Unknown]
  - Transient ischaemic attack [Unknown]
  - Retinal artery occlusion [Unknown]
